FAERS Safety Report 14543025 (Version 1)
Quarter: 2018Q1

REPORT INFORMATION
  Report Type: Spontaneous
  Country: VN (occurrence: VN)
  Receive Date: 20180216
  Receipt Date: 20180216
  Transmission Date: 20180509
  Serious: Yes (Death, Other)
  Sender: FDA-Public Use
  Company Number: VN-SA-2018SA023575

PATIENT
  Age: 12 Month
  Sex: Male
  Weight: 8.5 kg

DRUGS (1)
  1. MYOZYME [Suspect]
     Active Substance: ALGLUCOSIDASE ALFA
     Indication: GLYCOGEN STORAGE DISEASE TYPE II
     Route: 041
     Dates: start: 20170209, end: 20180111

REACTIONS (4)
  - Muscle disorder [Unknown]
  - Respiratory failure [Fatal]
  - Pneumonia [Unknown]
  - Cardiac failure [Unknown]

NARRATIVE: CASE EVENT DATE: 20180115
